FAERS Safety Report 22398665 (Version 5)
Quarter: 2023Q2

REPORT INFORMATION
  Report Type: Report from Study
  Country: IE (occurrence: IE)
  Receive Date: 20230602
  Receipt Date: 20230630
  Transmission Date: 20230722
  Serious: Yes (Hospitalization)
  Sender: FDA-Public Use
  Company Number: IE-SA-SAC20230530000852

PATIENT
  Age: 52 Year
  Sex: Male
  Weight: 71.7 kg

DRUGS (10)
  1. ISATUXIMAB [Suspect]
     Active Substance: ISATUXIMAB
     Indication: Plasma cell myeloma
     Dosage: 807 MG
     Route: 042
     Dates: start: 20221108, end: 20221108
  2. ISATUXIMAB [Suspect]
     Active Substance: ISATUXIMAB
     Dosage: 807 MG
     Route: 042
     Dates: start: 20230117, end: 20230117
  3. BORTEZOMIB [Suspect]
     Active Substance: BORTEZOMIB
     Indication: Plasma cell myeloma
     Dosage: 2.55 MG
     Route: 058
     Dates: start: 20221108, end: 20221108
  4. BORTEZOMIB [Suspect]
     Active Substance: BORTEZOMIB
     Dosage: 2.55 MG
     Route: 058
     Dates: start: 20230120, end: 20230120
  5. LENALIDOMIDE [Suspect]
     Active Substance: LENALIDOMIDE
     Indication: Plasma cell myeloma
     Dosage: 25 MG
     Route: 048
     Dates: start: 20221108, end: 20221108
  6. LENALIDOMIDE [Suspect]
     Active Substance: LENALIDOMIDE
     Dosage: 25 MG
     Route: 048
     Dates: start: 20230123, end: 20230123
  7. DEXAMETHASONE [Suspect]
     Active Substance: DEXAMETHASONE
     Indication: Plasma cell myeloma
     Dosage: 20 MG
     Route: 048
     Dates: start: 20221108, end: 20221108
  8. DEXAMETHASONE [Suspect]
     Active Substance: DEXAMETHASONE
     Dosage: 20 MG
     Route: 048
     Dates: start: 20230121, end: 20230121
  9. FAVIPIRA [Concomitant]
     Indication: Antiviral prophylaxis
     Dosage: 500 MG, BID
     Route: 048
     Dates: start: 20230526, end: 20230528
  10. IRON [Concomitant]
     Active Substance: IRON
     Indication: Blood iron decreased
     Dosage: 305 MG, QD
     Route: 048
     Dates: start: 20230528

REACTIONS (2)
  - Pyrexia [Not Recovered/Not Resolved]
  - COVID-19 [Recovered/Resolved]

NARRATIVE: CASE EVENT DATE: 20230424
